APPROVED DRUG PRODUCT: CEPHALEXIN
Active Ingredient: CEPHALEXIN
Strength: EQ 500MG BASE
Dosage Form/Route: CAPSULE;ORAL
Application: A062761 | Product #001
Applicant: TEVA PHARMACEUTICALS USA INC
Approved: Apr 24, 1987 | RLD: No | RS: No | Type: DISCN